FAERS Safety Report 13669648 (Version 4)
Quarter: 2017Q4

REPORT INFORMATION
  Report Type: Report from Study
  Country: US (occurrence: US)
  Receive Date: 20170620
  Receipt Date: 20171026
  Transmission Date: 20180320
  Serious: Yes (Hospitalization, Other)
  Sender: FDA-Public Use
  Company Number: US-AMGEN-USASL2017091185

PATIENT
  Age: 66 Year
  Sex: Male

DRUGS (2)
  1. REPATHA [Suspect]
     Active Substance: EVOLOCUMAB
     Indication: HYPERCHOLESTEROLAEMIA
  2. REPATHA [Suspect]
     Active Substance: EVOLOCUMAB
     Indication: BLOOD CHOLESTEROL INCREASED
     Dosage: 140 MG, Q2WK (TWICE MONTHLY)
     Route: 065

REACTIONS (6)
  - Gastrointestinal disorder [Unknown]
  - Chills [Unknown]
  - Nausea [Recovered/Resolved]
  - Coronary artery occlusion [Unknown]
  - Angina unstable [Unknown]
  - Diarrhoea [Recovered/Resolved]
